FAERS Safety Report 5834102-X (Version None)
Quarter: 2008Q3

REPORT INFORMATION
  Report Type: 
  Country: None (occurrence: None)
  Receive Date: 20080805
  Receipt Date: 20080730
  Transmission Date: 20090109
  Serious: Yes (Hospitalization)
  Sender: FDA-Public Use
  Company Number: AU-ASTRAZENECA-2008AP05212

PATIENT
  Age: 32 Year
  Sex: Female

DRUGS (1)
  1. SEROQUEL [Suspect]
     Dosage: PATIENT TAKEN 1000-1500MG
     Route: 048

REACTIONS (5)
  - AGGRESSION [None]
  - BELLIGERENCE [None]
  - DELIRIUM [None]
  - FEELING ABNORMAL [None]
  - URINARY RETENTION [None]
